FAERS Safety Report 12773417 (Version 1)
Quarter: 2016Q3

REPORT INFORMATION
  Report Type: Report from Study
  Country: US (occurrence: US)
  Receive Date: 20160922
  Receipt Date: 20160922
  Transmission Date: 20161109
  Serious: Yes (Hospitalization)
  Sender: FDA-Public Use
  Company Number: US-AMGEN-USASL2016126653

PATIENT
  Age: 29 Year
  Sex: Female

DRUGS (1)
  1. ENBREL [Suspect]
     Active Substance: ETANERCEPT
     Indication: RHEUMATOID ARTHRITIS
     Dosage: 50 MG, QWK
     Route: 065
     Dates: start: 201606

REACTIONS (4)
  - Fibromyalgia [Unknown]
  - Intervertebral disc protrusion [Unknown]
  - Mouth ulceration [Not Recovered/Not Resolved]
  - Tendonitis [Unknown]

NARRATIVE: CASE EVENT DATE: 2016
